FAERS Safety Report 11881922 (Version 1)
Quarter: 2015Q4

REPORT INFORMATION
  Report Type: Spontaneous
  Country: US (occurrence: US)
  Receive Date: 20151231
  Receipt Date: 20151231
  Transmission Date: 20160305
  Serious: Yes (Hospitalization)
  Sender: FDA-Public Use
  Company Number: US-ACTAVIS-2015-28435

PATIENT
  Age: 62 Year
  Sex: Female

DRUGS (2)
  1. ZENPEP [Suspect]
     Active Substance: PANCRELIPASE\PANCRELIPASE AMYLASE\PANCRELIPASE LIPASE\PANCRELIPASE PROTEASE
     Indication: PANCREATIC CARCINOMA
     Dosage: UNKNOWN, DAILY
     Route: 048
     Dates: start: 2011
  2. ATENOLOL (WATSON LABORATORIES) [Suspect]
     Active Substance: ATENOLOL
     Indication: BLOOD PRESSURE INCREASED
     Dosage: UNKNOWN, DAILY
     Route: 048
     Dates: end: 201511

REACTIONS (4)
  - Dizziness [Recovered/Resolved]
  - Weight decreased [Recovered/Resolved with Sequelae]
  - Pancreatic disorder [Recovered/Resolved]
  - Pancreas infection [Recovered/Resolved]

NARRATIVE: CASE EVENT DATE: 20151028
